FAERS Safety Report 8465438-4 (Version None)
Quarter: 2012Q2

REPORT INFORMATION
  Report Type: 
  Country: None (occurrence: None)
  Receive Date: 20120626
  Receipt Date: 20120620
  Transmission Date: 20120825
  Serious: Yes (Hospitalization, Other)
  Sender: FDA-Public Use
  Company Number: PHHY2012BE037735

PATIENT
  Sex: Male

DRUGS (3)
  1. AFINITOR [Suspect]
     Dosage: 5 MG, DAILY
     Route: 048
     Dates: start: 20120302, end: 20120410
  2. AFINITOR [Suspect]
     Indication: RENAL CANCER
     Dosage: 10 MG, DAILY
     Route: 048
     Dates: start: 20120130, end: 20120214
  3. MARCUMAR [Concomitant]

REACTIONS (8)
  - LUNG DISORDER [None]
  - CYANOSIS [None]
  - FATIGUE [None]
  - WHEEZING [None]
  - DYSPNOEA [None]
  - CHEST PAIN [None]
  - COUGH [None]
  - HYPOTENSION [None]
